FAERS Safety Report 5530898-5 (Version None)
Quarter: 2007Q4

REPORT INFORMATION
  Report Type: 
  Country: None (occurrence: None)
  Receive Date: 20071130
  Receipt Date: 20071121
  Transmission Date: 20080405
  Serious: Yes (Other)
  Sender: FDA-Public Use
  Company Number: ZA-ASTRAZENECA-2007SE05961

PATIENT
  Sex: Female

DRUGS (4)
  1. SEROQUEL [Suspect]
     Route: 048
     Dates: end: 20071101
  2. AROPAX [Concomitant]
     Indication: ANXIETY DISORDER
     Route: 048
  3. XANOR [Concomitant]
  4. ZOPIMED [Concomitant]

REACTIONS (3)
  - BLOOD CREATININE INCREASED [None]
  - DELIRIUM [None]
  - SEROTONIN SYNDROME [None]
